FAERS Safety Report 10591149 (Version 1)
Quarter: 2014Q4

REPORT INFORMATION
  Report Type: Spontaneous
  Country: BR (occurrence: BR)
  Receive Date: 20141118
  Receipt Date: 20141118
  Transmission Date: 20150529
  Serious: Yes (Other)
  Sender: FDA-Public Use
  Company Number: BR-ASTRAZENECA-2014SE86229

PATIENT
  Age: 811 Month
  Sex: Male
  Weight: 76 kg

DRUGS (5)
  1. ARADOIS [Concomitant]
     Active Substance: LOSARTAN POTASSIUM
     Indication: POST PROCEDURAL MYOCARDIAL INFARCTION
     Route: 048
     Dates: start: 201402
  2. SELOZOK [Suspect]
     Active Substance: METOPROLOL SUCCINATE
     Indication: POST PROCEDURAL MYOCARDIAL INFARCTION
     Route: 048
     Dates: start: 201402
  3. BRILINTA [Suspect]
     Active Substance: TICAGRELOR
     Indication: POST PROCEDURAL MYOCARDIAL INFARCTION
     Route: 048
     Dates: start: 201402
  4. ROSUVASTATIN [Suspect]
     Active Substance: ROSUVASTATIN
     Indication: POST PROCEDURAL MYOCARDIAL INFARCTION
     Route: 048
     Dates: start: 201402
  5. ASA [Concomitant]
     Active Substance: ASPIRIN
     Indication: POST PROCEDURAL MYOCARDIAL INFARCTION
     Route: 048
     Dates: start: 201402

REACTIONS (5)
  - Dry eye [Not Recovered/Not Resolved]
  - Haematoma [Not Recovered/Not Resolved]
  - Eye haemorrhage [Recovered/Resolved]
  - Eye pain [Not Recovered/Not Resolved]
  - Pruritus [Not Recovered/Not Resolved]

NARRATIVE: CASE EVENT DATE: 201402
